FAERS Safety Report 8502695-X (Version None)
Quarter: 2012Q3

REPORT INFORMATION
  Report Type: 
  Country: None (occurrence: None)
  Receive Date: 20120706
  Receipt Date: 20120706
  Transmission Date: 20120928
  Serious: No
  Sender: FDA-Public Use
  Company Number: None

PATIENT
  Age: 44 Year
  Sex: Female
  Weight: 55.3388 kg

DRUGS (1)
  1. ESCITALOPRAM 5MG/5ML GENERIC [Suspect]
     Indication: ANXIETY
     Dosage: 2.5ML ONCE A DAY PO
     Route: 048
     Dates: start: 20120702, end: 20120704

REACTIONS (3)
  - DIZZINESS [None]
  - CONFUSIONAL STATE [None]
  - PRODUCT SUBSTITUTION ISSUE [None]
